FAERS Safety Report 23113327 (Version 6)
Quarter: 2024Q1

REPORT INFORMATION
  Report Type: Report from Study
  Country: CA (occurrence: CA)
  Receive Date: 20231027
  Receipt Date: 20240116
  Transmission Date: 20240409
  Serious: Yes (Other)
  Sender: FDA-Public Use
  Company Number: CA-TAKEDA-2023TUS100709

PATIENT
  Age: 49 Year
  Sex: Female

DRUGS (1)
  1. VEDOLIZUMAB [Suspect]
     Active Substance: VEDOLIZUMAB
     Indication: Colitis ulcerative
     Dosage: 300 MILLIGRAM
     Route: 042
     Dates: start: 20231011, end: 20231204

REACTIONS (8)
  - Organising pneumonia [Unknown]
  - Pneumonia bacterial [Recovering/Resolving]
  - Product dose omission issue [Unknown]
  - Poor quality sleep [Unknown]
  - Asthma [Unknown]
  - Diarrhoea [Unknown]
  - Arthralgia [Unknown]
  - Fatigue [Unknown]

NARRATIVE: CASE EVENT DATE: 20231016
